FAERS Safety Report 4873043-1 (Version None)
Quarter: 2006Q1

REPORT INFORMATION
  Report Type: 
  Country: None (occurrence: None)
  Receive Date: 20060105
  Receipt Date: 20051209
  Transmission Date: 20060701
  Serious: Yes (Death)
  Sender: FDA-Public Use
  Company Number: CA-BRISTOL-MYERS SQUIBB COMPANY-13217526

PATIENT
  Age: 93 Year
  Sex: Male

DRUGS (14)
  1. TEQUIN [Suspect]
     Route: 042
  2. ALPRAZOLAM [Concomitant]
  3. AMIODARONE HCL [Concomitant]
  4. AZITHROMYCIN [Concomitant]
  5. CAPTOPRIL [Concomitant]
  6. CEFUROXIME [Concomitant]
     Route: 042
  7. COUMADIN [Concomitant]
  8. DIGOXIN [Concomitant]
  9. FERROUS GLUCONATE [Concomitant]
  10. FLUVOXAMINE MALEATE [Concomitant]
  11. LASIX [Concomitant]
  12. NITRO-DUR [Concomitant]
     Route: 062
  13. OXAZEPAM [Concomitant]
  14. TYLENOL [Concomitant]

REACTIONS (6)
  - AGGRESSION [None]
  - AGITATION [None]
  - CONFUSIONAL STATE [None]
  - DIZZINESS [None]
  - HALLUCINATION [None]
  - HYPOGLYCAEMIA [None]
